FAERS Safety Report 9656320 (Version 2)
Quarter: 2013Q4

REPORT INFORMATION
  Report Type: Spontaneous
  Country: GB (occurrence: US)
  Receive Date: 20131030
  Receipt Date: 20131226
  Transmission Date: 20140711
  Serious: No
  Sender: FDA-Public Use
  Company Number: US-PFIZER INC-2013306591

PATIENT
  Sex: Female

DRUGS (6)
  1. ATROPINE SULFATE/DIPHENOXYLATE HYDROCHLORIDE [Suspect]
     Indication: COLITIS ULCERATIVE
     Dosage: 4 DF,  4X/DAY
     Route: 048
  2. ACIPHEX [Suspect]
     Indication: COLITIS ULCERATIVE
     Dosage: 20 MG, 2X/DAY
     Route: 048
  3. OPIUM TINCTURE [Suspect]
     Indication: COLITIS ULCERATIVE
     Dosage: 1 ML, 4X/DAY
     Route: 048
  4. CETIRIZINE [Suspect]
     Indication: HYPERSENSITIVITY
     Dosage: 10 MG, 1X/DAY
     Route: 048
  5. MERCAPTOPURINE [Concomitant]
     Indication: COLITIS ULCERATIVE
     Dosage: 50 MG, 1X/DAY
     Route: 048
     Dates: end: 201310
  6. FOLIC ACID [Concomitant]
     Indication: COLITIS ULCERATIVE
     Dosage: 1 MG, 1X/DAY
     Route: 048
     Dates: end: 201310

REACTIONS (8)
  - Body height decreased [Unknown]
  - Pruritus [Not Recovered/Not Resolved]
  - Skin disorder [Not Recovered/Not Resolved]
  - Erythema [Not Recovered/Not Resolved]
  - Rash [Not Recovered/Not Resolved]
  - Furuncle [Not Recovered/Not Resolved]
  - Acne [Not Recovered/Not Resolved]
  - Hypersensitivity [Not Recovered/Not Resolved]
